FAERS Safety Report 7179411-X (Version None)
Quarter: 2010Q4

REPORT INFORMATION
  Report Type: 
  Country: None (occurrence: None)
  Receive Date: 20101217
  Receipt Date: 20101217
  Transmission Date: 20110411
  Serious: Yes (Hospitalization)
  Sender: FDA-Public Use
  Company Number: None

PATIENT
  Sex: Female
  Weight: 46.08 kg

DRUGS (11)
  1. CARBOPLATIN [Suspect]
     Dosage: 662 MG
     Dates: end: 20101208
  2. ERBITUX [Suspect]
     Dosage: 580 MG
     Dates: end: 20101208
  3. TAXOL [Suspect]
     Dosage: 290 MG
     Dates: end: 20101208
  4. ALBUTEROL SULFATE AUTOHALER [Concomitant]
  5. CELEXA [Concomitant]
  6. CLONAZEPAM [Concomitant]
  7. SPIRIVA [Concomitant]
  8. TESSALON [Concomitant]
  9. MEGESTROL ACETATE [Concomitant]
  10. PROCHLORPERAZINE [Concomitant]
  11. ZOFRAN [Concomitant]

REACTIONS (1)
  - HAEMOPTYSIS [None]
